FAERS Safety Report 5639050-6 (Version None)
Quarter: 2008Q1

REPORT INFORMATION
  Report Type: 
  Country: None (occurrence: None)
  Receive Date: 20080222
  Receipt Date: 20080205
  Transmission Date: 20080703
  Serious: Yes (Hospitalization)
  Sender: FDA-Public Use
  Company Number: ENT 2008-0016

PATIENT
  Age: 78 Year
  Sex: Male

DRUGS (2)
  1. COMTAN [Suspect]
     Indication: PARKINSON'S DISEASE
     Dosage: 200 MG (100 MG, 2 IN1 D); ORAL
     Route: 048
     Dates: start: 20071201
  2. PREDONINE [Concomitant]

REACTIONS (1)
  - CEREBRAL INFARCTION [None]
